FAERS Safety Report 5953591-3 (Version None)
Quarter: 2008Q4

REPORT INFORMATION
  Report Type: 
  Country: None (occurrence: None)
  Receive Date: 20081114
  Receipt Date: 20081110
  Transmission Date: 20090506
  Serious: Yes (Hospitalization)
  Sender: FDA-Public Use
  Company Number: A0756308A

PATIENT
  Age: 86 Year
  Sex: Male

DRUGS (10)
  1. ALKERAN [Suspect]
     Indication: MULTIPLE MYELOMA
     Dosage: 9MGM2 CYCLIC
     Route: 048
     Dates: start: 20071126, end: 20080306
  2. VELCADE [Suspect]
     Indication: MULTIPLE MYELOMA
     Dosage: 1.3MGM2 CYCLIC
     Route: 042
     Dates: start: 20071102, end: 20080331
  3. PREDNISONE TAB [Suspect]
     Indication: MULTIPLE MYELOMA
     Dosage: 60MGM2 CYCLIC
     Dates: start: 20071126, end: 20080306
  4. CIPRO [Concomitant]
  5. PLAVIX [Concomitant]
  6. LANOXIN [Concomitant]
  7. PAXIL [Concomitant]
  8. PRILOSEC [Concomitant]
  9. MEGACE [Concomitant]
  10. ASPIRIN [Concomitant]

REACTIONS (9)
  - CANDIDIASIS [None]
  - CONFUSIONAL STATE [None]
  - DEEP VEIN THROMBOSIS [None]
  - DEHYDRATION [None]
  - DIARRHOEA [None]
  - HYPERTENSION [None]
  - HYPONATRAEMIA [None]
  - LETHARGY [None]
  - URINARY TRACT INFECTION [None]
